FAERS Safety Report 5500334-3 (Version None)
Quarter: 2007Q4

REPORT INFORMATION
  Report Type: 
  Country: None (occurrence: None)
  Receive Date: 20071025
  Receipt Date: 20071010
  Transmission Date: 20080405
  Serious: Yes (Death, Life-Threatening, Hospitalization)
  Sender: FDA-Public Use
  Company Number: MPS1-10745

PATIENT
  Age: 6 Year
  Sex: Female
  Weight: 18 kg

DRUGS (2)
  1. ALDURAZYME [Suspect]
     Indication: MUCOPOLYSACCHARIDOSIS I
     Dosage: 1500 U/KG Q2WKS IV
     Route: 042
     Dates: start: 20031126, end: 20070101
  2. ALDURAZYME [Suspect]
     Indication: MUCOPOLYSACCHARIDOSIS I
     Dosage: 2000 U/KG Q2WKS IV
     Route: 042
     Dates: start: 20031126, end: 20070101

REACTIONS (3)
  - ASCITES [None]
  - PNEUMONIA [None]
  - RESPIRATORY FAILURE [None]
